FAERS Safety Report 25329283 (Version 1)
Quarter: 2025Q2

REPORT INFORMATION
  Report Type: Spontaneous
  Country: US (occurrence: US)
  Receive Date: 20250519
  Receipt Date: 20250519
  Transmission Date: 20250716
  Serious: Yes (Other)
  Sender: NOVO NORDISK
  Company Number: US-NOVOPROD-1416481

PATIENT
  Age: 53 Year
  Sex: Male

DRUGS (2)
  1. NOVOLIN 70/30 [Suspect]
     Active Substance: INSULIN HUMAN
     Indication: Product used for unknown indication
     Dosage: 10 IU, BID(10 UNITS AM AND PM)
     Dates: start: 202501
  2. NOVOLIN 70/30 [Suspect]
     Active Substance: INSULIN HUMAN

REACTIONS (3)
  - Blood glucose increased [Recovered/Resolved]
  - Product quality issue [Unknown]
  - Device defective [Unknown]

NARRATIVE: CASE EVENT DATE: 20250419
